FAERS Safety Report 5615977-6 (Version None)
Quarter: 2008Q1

REPORT INFORMATION
  Report Type: 
  Country: None (occurrence: None)
  Receive Date: 20080206
  Receipt Date: 20080122
  Transmission Date: 20080703
  Serious: No
  Sender: FDA-Public Use
  Company Number: US-BOEHRINGER INGELHEIM GMBH, GERMANY-2007-BP-25321BP

PATIENT
  Sex: Female

DRUGS (15)
  1. SPIRIVA [Suspect]
     Indication: DYSPNOEA
  2. SPIRIVA [Suspect]
     Indication: PNEUMONIA
  3. OXYGEN [Concomitant]
     Indication: PNEUMONIA
  4. OTHER MEDICATIONS [Concomitant]
     Indication: PNEUMONIA
  5. HERBALS [Concomitant]
  6. VITAMINS [Concomitant]
  7. AZULFIDINE EN-TABS [Concomitant]
     Indication: CROHN'S DISEASE
  8. DONNATAL [Concomitant]
     Indication: CROHN'S DISEASE
  9. TRAMADOL HCL [Concomitant]
  10. ZYRTEC [Concomitant]
  11. PREMARIN [Concomitant]
  12. GABAPENTIN [Concomitant]
     Indication: MUSCLE SPASMS
  13. MELOXICAM [Concomitant]
  14. ASPIRIN [Concomitant]
  15. TOPROL-XL [Concomitant]

REACTIONS (4)
  - ORAL MUCOSAL EXFOLIATION [None]
  - PHARYNGEAL OEDEMA [None]
  - SWOLLEN TONGUE [None]
  - TONGUE EXFOLIATION [None]
